FAERS Safety Report 8595572-X (Version None)
Quarter: 2012Q3

REPORT INFORMATION
  Report Type: 
  Country: None (occurrence: None)
  Receive Date: 20120815
  Receipt Date: 20120806
  Transmission Date: 20120928
  Serious: Yes (Other)
  Sender: FDA-Public Use
  Company Number: SE-ASTRAZENECA-2012SE55502

PATIENT
  Sex: Male
  Weight: 77 kg

DRUGS (4)
  1. PLENDIL [Suspect]
     Indication: HYPERTENSION
     Route: 048
  2. PLENDIL [Suspect]
     Route: 048
  3. AVASTIN [Concomitant]
     Indication: COLON NEOPLASM
  4. METOPROLOL TARTRATE [Concomitant]
     Indication: ARRHYTHMIA PROPHYLAXIS

REACTIONS (4)
  - GENERALISED ERYTHEMA [None]
  - DRUG INEFFECTIVE [None]
  - COLON NEOPLASM [None]
  - ATRIAL FIBRILLATION [None]
